FAERS Safety Report 11424890 (Version 2)
Quarter: 2015Q4

REPORT INFORMATION
  Report Type: Report from Study
  Country: DE (occurrence: DE)
  Receive Date: 20150827
  Receipt Date: 20151118
  Transmission Date: 20160304
  Serious: Yes (Hospitalization, Other)
  Sender: FDA-Public Use
  Company Number: DE-ABBVIE-15K-062-1450957-00

PATIENT
  Age: 41 Year
  Sex: Female

DRUGS (1)
  1. HUMIRA [Suspect]
     Active Substance: ADALIMUMAB
     Indication: CROHN^S DISEASE
     Route: 058
     Dates: start: 2010

REACTIONS (6)
  - Drug ineffective [Unknown]
  - Post procedural swelling [Not Recovered/Not Resolved]
  - Suture related complication [Not Recovered/Not Resolved]
  - Incision site cellulitis [Not Recovered/Not Resolved]
  - Procedural complication [Recovered/Resolved]
  - Incision site erythema [Not Recovered/Not Resolved]

NARRATIVE: CASE EVENT DATE: 2015
